FAERS Safety Report 5898044-6 (Version None)
Quarter: 2008Q3

REPORT INFORMATION
  Report Type: 
  Country: None (occurrence: None)
  Receive Date: 20080925
  Receipt Date: 20080912
  Transmission Date: 20090109
  Serious: Yes (Death, Life-Threatening)
  Sender: FDA-Public Use
  Company Number: DE-ROCHE-583466

PATIENT
  Sex: Male
  Weight: 86.7 kg

DRUGS (3)
  1. RIVOTRIL [Suspect]
     Dosage: OVERDOSE. DOSAGE REGIMEN REPORTED AS: 3 X 2 MG DAILY.
     Route: 065
     Dates: start: 20050901, end: 20080226
  2. RIVOTRIL [Suspect]
     Dosage: DOSAGE REGIMEN REPORTED AS: 2 X 2 MG DAILY.
     Route: 065
     Dates: start: 20080227
  3. METHADONE HCL [Interacting]
     Indication: DRUG WITHDRAWAL MAINTENANCE THERAPY
     Dosage: DOSAGE FORM: LIQUID.
     Route: 050
     Dates: start: 20080224, end: 20080227

REACTIONS (3)
  - DRUG INTERACTION [None]
  - OVERDOSE [None]
  - PNEUMONIA [None]
